FAERS Safety Report 20832802 (Version 1)
Quarter: 2022Q2

REPORT INFORMATION
  Report Type: Report from Study
  Country: US (occurrence: US)
  Receive Date: 20220516
  Receipt Date: 20220516
  Transmission Date: 20220721
  Serious: No
  Sender: FDA-Public Use
  Company Number: US-TG THERAPEUTICS INC.-TGT002483

PATIENT
  Age: 72 Year
  Sex: Female

DRUGS (1)
  1. UMBRALISIB [Suspect]
     Active Substance: UMBRALISIB
     Indication: Follicular lymphoma
     Dosage: 800 MILLIGRAM, QD
     Route: 048

REACTIONS (3)
  - Dry skin [Unknown]
  - Pruritus [Unknown]
  - Chapped lips [Unknown]

NARRATIVE: CASE EVENT DATE: 20220304
